FAERS Safety Report 16865454 (Version 1)
Quarter: 2019Q3

REPORT INFORMATION
  Report Type: Report from Study
  Country: None (occurrence: TR)
  Receive Date: 20190930
  Receipt Date: 20190930
  Transmission Date: 20191005
  Serious: Yes (Other)
  Sender: FDA-Public Use
  Company Number: TR-ABBVIE-19K-161-2934792-00

PATIENT
  Age: 62 Year
  Sex: Female
  Weight: 62 kg

DRUGS (5)
  1. DUODOPA [Suspect]
     Active Substance: CARBIDOPA\LEVODOPA
     Indication: PARKINSON^S DISEASE
     Dosage: MORNING DOSE (ML): 6.00 CONTINUOUS DOSE (ML): 2.40 EXTRA DOSE (ML): 1.00
     Route: 050
     Dates: start: 20190918
  2. RIVOTRIL [Concomitant]
     Active Substance: CLONAZEPAM
     Indication: RAPID EYE MOVEMENT SLEEP BEHAVIOUR DISORDER
     Dosage: 1X1/2
     Route: 048
     Dates: start: 201905
  3. CO-DIOVAN [Concomitant]
     Active Substance: HYDROCHLOROTHIAZIDE\VALSARTAN
     Indication: HYPERTENSION
     Route: 048
     Dates: start: 2019
  4. NORTAN [Concomitant]
     Indication: HYPERTENSION
     Route: 048
     Dates: start: 2003
  5. PK-MERZ [Concomitant]
     Active Substance: AMANTADINE
     Indication: PARKINSON^S DISEASE
     Dosage: 2X2
     Route: 048
     Dates: start: 2006

REACTIONS (3)
  - C-reactive protein increased [Recovering/Resolving]
  - Bacterial infection [Unknown]
  - Stoma site discharge [Recovering/Resolving]

NARRATIVE: CASE EVENT DATE: 201909
